APPROVED DRUG PRODUCT: VIGABATRIN
Active Ingredient: VIGABATRIN
Strength: 500MG
Dosage Form/Route: TABLET;ORAL
Application: A215109 | Product #001 | TE Code: AB
Applicant: DEXCEL PHARMA TECHNOLOGIES LTD
Approved: Sep 23, 2021 | RLD: No | RS: No | Type: RX